FAERS Safety Report 6634184-1 (Version None)
Quarter: 2010Q1

REPORT INFORMATION
  Report Type: 
  Country: None (occurrence: None)
  Receive Date: 20100309
  Receipt Date: 20100225
  Transmission Date: 20100710
  Serious: Yes (Other)
  Sender: FDA-Public Use
  Company Number: LEO-2010-00105

PATIENT
  Sex: Female

DRUGS (2)
  1. INNOHEP [Suspect]
     Indication: ANTICOAGULANT THERAPY
     Dosage: 14000 IU, SUBCUTANEOUS
     Route: 058
  2. PLAVIX [Concomitant]

REACTIONS (2)
  - HAEMORRHAGE [None]
  - OFF LABEL USE [None]
